FAERS Safety Report 4818672-6 (Version None)
Quarter: 2005Q4

REPORT INFORMATION
  Report Type: 
  Country: None (occurrence: None)
  Receive Date: 20051101
  Receipt Date: 20051018
  Transmission Date: 20060501
  Serious: Yes (Other)
  Sender: FDA-Public Use
  Company Number: 2005BI018136

PATIENT
  Age: 60 Year
  Sex: Female

DRUGS (2)
  1. AVONEX [Suspect]
     Indication: MULTIPLE SCLEROSIS
     Dosage: 30 UG; QW; IM
     Route: 030
     Dates: start: 20010908, end: 20030801
  2. AVONEX [Suspect]
     Indication: MULTIPLE SCLEROSIS
     Dosage: 30 UG; QW; IM
     Route: 030
     Dates: start: 20010908, end: 20030801

REACTIONS (4)
  - ANTIMITOCHONDRIAL ANTIBODY POSITIVE [None]
  - BILIARY CIRRHOSIS PRIMARY [None]
  - HEPATIC ENZYME INCREASED [None]
  - LYMPHADENOPATHY [None]
